FAERS Safety Report 8328101-6 (Version None)
Quarter: 2012Q2

REPORT INFORMATION
  Report Type: 
  Country: None (occurrence: None)
  Receive Date: 20120502
  Receipt Date: 20120424
  Transmission Date: 20120825
  Serious: Yes (Other)
  Sender: FDA-Public Use
  Company Number: PHHY2012BR034923

PATIENT
  Sex: Female

DRUGS (1)
  1. DIOVAN HCT [Suspect]
     Dosage: (160/12.5 MG), UNK

REACTIONS (3)
  - BRAIN INJURY [None]
  - DEMENTIA ALZHEIMER'S TYPE [None]
  - CEREBRAL ISCHAEMIA [None]
